FAERS Safety Report 21265934 (Version 1)
Quarter: 2022Q3

REPORT INFORMATION
  Report Type: Spontaneous
  Country: US (occurrence: None)
  Receive Date: 20220828
  Receipt Date: 20220828
  Transmission Date: 20221027
  Serious: Yes (Disabling, Other)
  Sender: FDA-Public Use
  Company Number: None

PATIENT
  Age: 38 Year
  Sex: Female

DRUGS (1)
  1. ETHINYL ESTRADIOL\NORETHINDRONE ACETATE [Suspect]
     Active Substance: ETHINYL ESTRADIOL\NORETHINDRONE ACETATE
     Dates: start: 20220510

REACTIONS (4)
  - Malaise [None]
  - Dysmenorrhoea [None]
  - Abdominal distension [None]
  - Drug ineffective [None]

NARRATIVE: CASE EVENT DATE: 20220828
